FAERS Safety Report 20760962 (Version 2)
Quarter: 2022Q2

REPORT INFORMATION
  Report Type: Spontaneous
  Country: US (occurrence: US)
  Receive Date: 20220428
  Receipt Date: 20220610
  Transmission Date: 20220721
  Serious: Yes (Other)
  Sender: FDA-Public Use
  Company Number: ENDG22-02429

PATIENT
  Sex: Female

DRUGS (3)
  1. PROPRANOLOL HYDROCHLORIDE [Suspect]
     Active Substance: PROPRANOLOL HYDROCHLORIDE
     Indication: Hypertension
     Dosage: 2 DF, DAILY
     Route: 048
     Dates: start: 2021
  2. PROPRANOLOL HYDROCHLORIDE [Suspect]
     Active Substance: PROPRANOLOL HYDROCHLORIDE
     Indication: Dystonia
  3. LORAZEPAM [Concomitant]
     Active Substance: LORAZEPAM
     Indication: Anxiety
     Dosage: UNK UNKNOWN, UNKNOWN
     Route: 048

REACTIONS (6)
  - Hip fracture [Unknown]
  - Pruritus [Unknown]
  - Throat irritation [Unknown]
  - Hyperhidrosis [Unknown]
  - Dry eye [Unknown]
  - Product physical issue [Not Recovered/Not Resolved]
